FAERS Safety Report 8366070-3 (Version None)
Quarter: 2012Q2

REPORT INFORMATION
  Report Type: 
  Country: None (occurrence: None)
  Receive Date: 20120517
  Receipt Date: 20120507
  Transmission Date: 20120825
  Serious: Yes (Other)
  Sender: FDA-Public Use
  Company Number: US-ELI_LILLY_AND_COMPANY-US201203003644

PATIENT
  Sex: Female
  Weight: 63.039 kg

DRUGS (11)
  1. CRESTOR [Concomitant]
     Dosage: UNK, UNKNOWN
     Dates: start: 20120309
  2. CALCIUM [Concomitant]
  3. THYROID TAB [Concomitant]
     Dosage: UNK, UNKNOWN
  4. D3 [Concomitant]
  5. CYMBALTA [Suspect]
     Dosage: 30 MG, QD
  6. CYMBALTA [Suspect]
     Indication: FIBROMYALGIA
     Dosage: 20 MG, QD
  7. CYMBALTA [Suspect]
     Dosage: 60 MG, QD
     Route: 048
     Dates: start: 20101108, end: 20120301
  8. VITAMIN B COMPLEX CAP [Concomitant]
  9. MAGNESIUM [Concomitant]
  10. LUNESTA [Concomitant]
     Dosage: UNK, UNKNOWN
  11. HORMONES [Concomitant]

REACTIONS (6)
  - NAUSEA [None]
  - DIZZINESS [None]
  - GAIT DISTURBANCE [None]
  - HEADACHE [None]
  - HAEMOCHROMATOSIS [None]
  - CONSTIPATION [None]
